FAERS Safety Report 18673133 (Version 1)
Quarter: 2020Q4

REPORT INFORMATION
  Report Type: Report from Study
  Country: US (occurrence: US)
  Receive Date: 20201228
  Receipt Date: 20201228
  Transmission Date: 20210114
  Serious: Yes (Hospitalization)
  Sender: FDA-Public Use
  Company Number: US-MYLANLABS-2020M1103990

PATIENT
  Sex: Male
  Weight: 74 kg

DRUGS (1)
  1. GLATIRAMER ACETATE INJECTION [Suspect]
     Active Substance: GLATIRAMER ACETATE
     Indication: RELAPSING-REMITTING MULTIPLE SCLEROSIS
     Dosage: 40 MILLIGRAM, BIWEEKLY
     Route: 058

REACTIONS (3)
  - Fall [Unknown]
  - Injury [Unknown]
  - Inappropriate schedule of product administration [Not Recovered/Not Resolved]
